FAERS Safety Report 25532897 (Version 1)
Quarter: 2025Q3

REPORT INFORMATION
  Report Type: Spontaneous
  Country: US (occurrence: US)
  Receive Date: 20250709
  Receipt Date: 20250709
  Transmission Date: 20251021
  Serious: No
  Sender: APOTEX
  Company Number: US-APOTEX-2025AP008815

PATIENT
  Sex: Male

DRUGS (1)
  1. PRAVASTATIN SODIUM [Suspect]
     Active Substance: PRAVASTATIN SODIUM
     Indication: Product used for unknown indication
     Dosage: 1 DOSAGE FORM, QD
     Route: 065
     Dates: start: 2025

REACTIONS (1)
  - Product use complaint [Unknown]

NARRATIVE: CASE EVENT DATE: 20250101
